FAERS Safety Report 8915428 (Version 1)
Quarter: 2012Q4

REPORT INFORMATION
  Report Type: 
  Country: US (occurrence: US)
  Receive Date: 20121119
  Receipt Date: 20121119
  Transmission Date: 20130627
  Serious: No
  Sender: FDA-Public Use
  Company Number: US-PFIZER INC-2012288103

PATIENT
  Age: 50 Year
  Sex: Female
  Weight: 86.17 kg

DRUGS (4)
  1. LYRICA [Suspect]
     Indication: NEUROPATHY
     Dosage: UNK
     Dates: start: 2010
  2. LYRICA [Suspect]
     Dosage: 50 mg in the morning, 50 mg in the afternoon and 75 mg at night
  3. ATENOLOL [Concomitant]
     Indication: HYPERTENSION
     Dosage: 25 mg, daily
  4. PANTOPRAZOLE [Concomitant]
     Indication: GASTROESOPHAGEAL REFLUX DISEASE
     Dosage: 40 mg, 2x/day

REACTIONS (1)
  - Weight increased [Not Recovered/Not Resolved]
